FAERS Safety Report 5691100-7 (Version None)
Quarter: 2008Q2

REPORT INFORMATION
  Report Type: 
  Country: None (occurrence: None)
  Receive Date: 20080401
  Receipt Date: 20080401
  Transmission Date: 20081010
  Serious: Yes (Hospitalization)
  Sender: FDA-Public Use
  Company Number: MX-BOEHRINGER INGELHEIM GMBH, GERMANY-2008-BP-01500MX

PATIENT
  Age: 78 Year
  Sex: Male

DRUGS (3)
  1. SECOTEX CAPSULES 0.4MG [Suspect]
     Indication: BENIGN PROSTATIC HYPERPLASIA
     Route: 048
     Dates: start: 20070101, end: 20070101
  2. CAPTOPRIL [Concomitant]
     Indication: HYPERTENSION
     Route: 048
  3. PROSCAR [Concomitant]
     Indication: BENIGN PROSTATIC HYPERPLASIA
     Route: 048
     Dates: start: 20070101, end: 20070101

REACTIONS (1)
  - DRUG INEFFECTIVE [None]
